FAERS Safety Report 18685296 (Version 1)
Quarter: 2020Q4

REPORT INFORMATION
  Report Type: Spontaneous
  Country: US (occurrence: US)
  Receive Date: 20201230
  Receipt Date: 20201230
  Transmission Date: 20210114
  Serious: No
  Sender: FDA-Public Use
  Company Number: US-SUNOVION-2020SUN003849

PATIENT
  Sex: Female

DRUGS (3)
  1. TIGAN [Concomitant]
     Active Substance: TRIMETHOBENZAMIDE HYDROCHLORIDE
     Indication: NAUSEA
     Dosage: UNK
     Route: 065
  2. DOPAMINE [Concomitant]
     Active Substance: DOPAMINE HYDROCHLORIDE
     Dosage: UNK
  3. KYNMOBI [Suspect]
     Active Substance: APOMORPHINE HYDROCHLORIDE
     Dosage: UNK
     Route: 060

REACTIONS (2)
  - Nausea [Unknown]
  - Vomiting [Unknown]
